FAERS Safety Report 15797689 (Version 2)
Quarter: 2019Q3

REPORT INFORMATION
  Report Type: Spontaneous
  Country: US (occurrence: US)
  Receive Date: 20190108
  Receipt Date: 20190812
  Transmission Date: 20191004
  Serious: No
  Sender: FDA-Public Use
  Company Number: US-MYLANLABS-2018M1094335

PATIENT
  Age: 66 Year
  Sex: Female

DRUGS (1)
  1. METOPROLOL TARTRATE TABLETS USP [Suspect]
     Active Substance: METOPROLOL TARTRATE
     Indication: ARRHYTHMIA
     Dosage: HALF TABLET IN MORNING AND HALF TABLET AT NIGHT
     Route: 048

REACTIONS (3)
  - Off label use [Unknown]
  - Palpitations [Recovered/Resolved]
  - Heart rate increased [Recovered/Resolved]

NARRATIVE: CASE EVENT DATE: 20181214
